FAERS Safety Report 5801249-3 (Version None)
Quarter: 2008Q3

REPORT INFORMATION
  Report Type: 
  Country: None (occurrence: None)
  Receive Date: 20080707
  Receipt Date: 20080627
  Transmission Date: 20090109
  Serious: Yes (Hospitalization)
  Sender: FDA-Public Use
  Company Number: FR-JNJFOC-20080606625

PATIENT
  Sex: Female
  Weight: 2.5 kg

DRUGS (2)
  1. HALDOL [Suspect]
     Indication: DRUG EXPOSURE DURING PREGNANCY
  2. TERCIAN [Suspect]
     Indication: DRUG EXPOSURE DURING PREGNANCY

REACTIONS (4)
  - ABDOMINAL DISTENSION [None]
  - DYSKINESIA [None]
  - SMALL FOR DATES BABY [None]
  - TREMOR [None]
